FAERS Safety Report 15309816 (Version 1)
Quarter: 2018Q3

REPORT INFORMATION
  Report Type: Spontaneous
  Country: US (occurrence: US)
  Receive Date: 20180812
  Receipt Date: 20180812
  Transmission Date: 20181010
  Serious: Yes (Life-Threatening)
  Sender: FDA-Public Use
  Company Number: None

PATIENT
  Age: 68 Year
  Sex: Male
  Weight: 69.75 kg

DRUGS (3)
  1. IMODIUM [Concomitant]
     Active Substance: LOPERAMIDE HYDROCHLORIDE
  2. VITAMIN D [Concomitant]
     Active Substance: CHOLECALCIFEROL
  3. CHOLESTYRAMINE 4 G PACKET [Suspect]
     Active Substance: CHOLESTYRAMINE
     Indication: DIARRHOEA
     Dosage: ?          QUANTITY:1 4 G PACKET;?
     Route: 048
     Dates: start: 20180214, end: 20180217

REACTIONS (3)
  - Muscular weakness [None]
  - Dizziness [None]
  - Rectal haemorrhage [None]

NARRATIVE: CASE EVENT DATE: 20180214
